FAERS Safety Report 9890932 (Version 1)
Quarter: 2014Q1

REPORT INFORMATION
  Report Type: Spontaneous
  Country: FR (occurrence: None)
  Receive Date: 20140210
  Receipt Date: 20140210
  Transmission Date: 20141002
  Serious: Yes (Disabling)
  Sender: FDA-Public Use
  Company Number: SYM-2014-17152

PATIENT
  Age: 73 Year
  Sex: Male

DRUGS (3)
  1. TARGRETIN [Suspect]
     Indication: MYCOSIS FUNGOIDES
     Route: 048
     Dates: start: 201308
  2. TAHOR (ATORVASTATIN CALCIUM (ATORVASTATIN CALCIUM) [Concomitant]
  3. LEVOTHYROX (LEVOTHYROXINE SODIUM) [Concomitant]

REACTIONS (3)
  - Myalgia [None]
  - Exercise lack of [None]
  - Blood creatine phosphokinase increased [None]
